FAERS Safety Report 4474306-4 (Version None)
Quarter: 2004Q4

REPORT INFORMATION
  Report Type: 
  Country: None (occurrence: None)
  Receive Date: 20041008
  Receipt Date: 20040923
  Transmission Date: 20050328
  Serious: Yes (Other)
  Sender: FDA-Public Use
  Company Number: US-2004-032344

PATIENT
  Age: 52 Year
  Sex: Female

DRUGS (6)
  1. BETASERON [Suspect]
     Indication: MULTIPLE SCLEROSIS
     Dosage: 8 MIU, EVERY 2D, SUBCUTANEOUS
     Route: 058
     Dates: start: 20030628, end: 20040831
  2. NEURONTIN [Concomitant]
  3. PROZAC [Concomitant]
  4. DITROPAN (OYBUTYNIN HYDROCHLORIDE) [Concomitant]
  5. KLONOPIN [Concomitant]
  6. ZOCOR [Concomitant]

REACTIONS (6)
  - ABASIA [None]
  - COUGH [None]
  - HEPATITIS C [None]
  - HYPOKINESIA [None]
  - MOTOR DYSFUNCTION [None]
  - RESPIRATORY TRACT CONGESTION [None]
